FAERS Safety Report 4880215-9 (Version None)
Quarter: 2005Q4

REPORT INFORMATION
  Report Type: 
  Country: None (occurrence: None)
  Receive Date: 20051223
  Receipt Date: 20051020
  Transmission Date: 20060501
  Serious: No
  Sender: FDA-Public Use
  Company Number: 05P-163-0314711-00

PATIENT
  Sex: Male

DRUGS (1)
  1. HUMIRA [Suspect]
     Dosage: 40 MG, SUBCUTANEOUS
     Route: 058
     Dates: start: 20051014

REACTIONS (2)
  - SNEEZING [None]
  - UNEVALUABLE EVENT [None]
